FAERS Safety Report 5741579-7 (Version None)
Quarter: 2008Q2

REPORT INFORMATION
  Report Type: 
  Country: None (occurrence: None)
  Receive Date: 20080519
  Receipt Date: 20070605
  Transmission Date: 20081010
  Serious: No
  Sender: FDA-Public Use
  Company Number: US-BAYER-US-2007-021171

PATIENT
  Age: 70 Year
  Sex: Female
  Weight: 63 kg

DRUGS (3)
  1. ULTRAVIST 300 [Suspect]
     Indication: COMPUTERISED TOMOGRAM
     Dosage: UNIT DOSE: 125 ML
     Route: 042
     Dates: start: 20070604, end: 20070604
  2. ULTRAVIST 300 [Suspect]
     Route: 042
  3. READI-CAT [Concomitant]

REACTIONS (2)
  - DYSPNOEA [None]
  - THROAT IRRITATION [None]
